FAERS Safety Report 8959842 (Version 1)
Quarter: 2012Q4

REPORT INFORMATION
  Report Type: 
  Country: US (occurrence: US)
  Receive Date: 20121212
  Receipt Date: 20121212
  Transmission Date: 20130627
  Serious: No
  Sender: FDA-Public Use
  Company Number: US-MYLANLABS-2012S1018692

PATIENT
  Age: 66 Year
  Sex: Female

DRUGS (3)
  1. FLURAZEPAM HYDROCHLORIDE [Suspect]
     Indication: INSOMNIA
     Route: 048
     Dates: start: 20120828
  2. XANAX [Concomitant]
     Dosage: Anxiety
  3. ASPIRIN [Concomitant]
     Indication: HEADACHE

REACTIONS (4)
  - Drug ineffective [Not Recovered/Not Resolved]
  - Insomnia [Not Recovered/Not Resolved]
  - Reaction to drug excipients [Not Recovered/Not Resolved]
  - Skin ulcer [Not Recovered/Not Resolved]
